FAERS Safety Report 13625284 (Version 2)
Quarter: 2017Q3

REPORT INFORMATION
  Report Type: Spontaneous
  Country: JP (occurrence: JP)
  Receive Date: 20170608
  Receipt Date: 20170823
  Transmission Date: 20171127
  Serious: Yes (Hospitalization)
  Sender: FDA-Public Use
  Company Number: JP-FERRINGPH-2017FE02633

PATIENT

DRUGS (19)
  1. GONAX [Suspect]
     Active Substance: DEGARELIX
     Indication: PROSTATE CANCER
     Dosage: 240 MG, ONCE/SINGLE
     Route: 058
     Dates: start: 20161201, end: 20161201
  2. PREDONINE [Concomitant]
     Active Substance: PREDNISOLONE
     Indication: DISEASE PROGRESSION
     Dosage: 60 MG, DAILY
     Route: 048
     Dates: start: 20161226, end: 20170109
  3. MAINTATE [Concomitant]
     Active Substance: BISOPROLOL FUMARATE
     Dosage: UNK
  4. RANITIDINE. [Concomitant]
     Active Substance: RANITIDINE
     Dosage: UNK
     Dates: end: 20161227
  5. PREDONINE [Concomitant]
     Active Substance: PREDNISOLONE
     Dosage: 20 MG, DAILY
     Dates: start: 20170227
  6. PREDONINE [Concomitant]
     Active Substance: PREDNISOLONE
     Dosage: 15 MG, DAILY
     Dates: start: 20170316
  7. PREDONINE [Concomitant]
     Active Substance: PREDNISOLONE
     Dosage: 30 MG, DAILY
     Dates: start: 20170413
  8. CLOPIDRO [Concomitant]
     Dosage: UNK
  9. PREDONINE [Concomitant]
     Active Substance: PREDNISOLONE
     Dosage: 40 MG, DAILY
     Dates: start: 20170124
  10. BAYASPIRIN [Concomitant]
     Active Substance: ASPIRIN
     Dosage: UNK
  11. PREMINENT [Concomitant]
     Active Substance: HYDROCHLOROTHIAZIDE\LOSARTAN POTASSIUM
     Dosage: UNK
  12. CLARITHROMYCIN. [Concomitant]
     Active Substance: CLARITHROMYCIN
     Dosage: UNK
     Dates: start: 20161205, end: 20161219
  13. PREDONINE [Concomitant]
     Active Substance: PREDNISOLONE
     Dosage: 50 MG, DAILY
     Dates: start: 20170110
  14. PREDONINE [Concomitant]
     Active Substance: PREDNISOLONE
     Dosage: 30 MG, DAILY
     Dates: start: 20170206
  15. PREDONINE [Concomitant]
     Active Substance: PREDNISOLONE
     Dosage: 60 MG, DAILY
     Dates: start: 20170529
  16. ALOSITOL [Concomitant]
     Active Substance: ALLOPURINOL
     Dosage: UNK
     Dates: end: 20161227
  17. GONAX [Suspect]
     Active Substance: DEGARELIX
     Dosage: 80 MG, MONTHLY
     Route: 058
     Dates: start: 20170105, end: 20170511
  18. BICALUTAMIDE. [Suspect]
     Active Substance: BICALUTAMIDE
     Indication: PROSTATE CANCER
     Dosage: 80 MG, 1 TIME DAILY
     Route: 048
     Dates: start: 20161201, end: 20161226
  19. NICORANDIL [Concomitant]
     Active Substance: NICORANDIL
     Dosage: UNK

REACTIONS (1)
  - Interstitial lung disease [Not Recovered/Not Resolved]

NARRATIVE: CASE EVENT DATE: 20161219
